FAERS Safety Report 4654337-1 (Version None)
Quarter: 2005Q2

REPORT INFORMATION
  Report Type: 
  Country: None (occurrence: None)
  Receive Date: 20050404
  Receipt Date: 20050209
  Transmission Date: 20051028
  Serious: No
  Sender: FDA-Public Use
  Company Number: USA041080020

PATIENT
  Age: 69 Year
  Sex: Female

DRUGS (5)
  1. PROZAC [Suspect]
     Indication: DEPRESSION
     Route: 048
  2. CYMBALTA [Suspect]
     Indication: DEPRESSION
     Dosage: 30 MG DAY
     Dates: start: 20040927
  3. TRAZADONE(TRAZODONE) [Concomitant]
  4. PHARMANEX VITAMINS [Concomitant]
  5. GLUCOSAMINE [Concomitant]

REACTIONS (8)
  - ASTHENIA [None]
  - DIARRHOEA [None]
  - DRY MOUTH [None]
  - FLAT AFFECT [None]
  - GLOSSODYNIA [None]
  - NAUSEA [None]
  - TONGUE ULCERATION [None]
  - TREMOR [None]
